FAERS Safety Report 16320357 (Version 4)
Quarter: 2019Q3

REPORT INFORMATION
  Report Type: Spontaneous
  Country: US (occurrence: US)
  Receive Date: 20190516
  Receipt Date: 20190816
  Transmission Date: 20191004
  Serious: Yes (Other)
  Sender: FDA-Public Use
  Company Number: US-PFIZER INC-2019207756

PATIENT
  Age: 60 Year
  Sex: Female

DRUGS (2)
  1. LEVETIRACETAM. [Concomitant]
     Active Substance: LEVETIRACETAM
     Dosage: UNK
     Dates: start: 20190509
  2. INLYTA [Suspect]
     Active Substance: AXITINIB
     Indication: CHEMOTHERAPY
     Dosage: 10 MG, UNK
     Dates: start: 20190528, end: 20190806

REACTIONS (4)
  - Neoplasm progression [Unknown]
  - Nausea [Not Recovered/Not Resolved]
  - Mental impairment [Recovered/Resolved]
  - Fatigue [Not Recovered/Not Resolved]

NARRATIVE: CASE EVENT DATE: 2019
